FAERS Safety Report 23045426 (Version 1)
Quarter: 2023Q4

REPORT INFORMATION
  Report Type: Other
  Country: CA (occurrence: CA)
  Receive Date: 20231009
  Receipt Date: 20231009
  Transmission Date: 20240109
  Serious: Yes (Other)
  Sender: FDA-Public Use
  Company Number: CA-PFIZER INC-202300318147

PATIENT

DRUGS (9)
  1. ROCURONIUM BROMIDE [Suspect]
     Active Substance: ROCURONIUM BROMIDE
     Dosage: 50 MG
     Route: 064
  2. ROCURONIUM BROMIDE [Suspect]
     Active Substance: ROCURONIUM BROMIDE
     Dosage: UNK
     Route: 064
  3. MIDAZOLAM [Suspect]
     Active Substance: MIDAZOLAM
     Dosage: UNK
     Route: 064
  4. NOREPINEPHRINE BITARTRATE [Suspect]
     Active Substance: NOREPINEPHRINE BITARTRATE
     Dosage: UNK
     Route: 064
  5. FENTANYL [Suspect]
     Active Substance: FENTANYL
     Dosage: UNK
     Route: 064
  6. NITRIC OXIDE [Suspect]
     Active Substance: NITRIC OXIDE
     Route: 064
  7. PIPERACILLIN SODIUM\TAZOBACTAM SODIUM [Suspect]
     Active Substance: PIPERACILLIN SODIUM\TAZOBACTAM SODIUM
     Route: 064
  8. PROPOFOL [Suspect]
     Active Substance: PROPOFOL
     Dosage: UNK
     Route: 064
  9. VASOPRESSIN [Suspect]
     Active Substance: VASOPRESSIN
     Route: 064

REACTIONS (5)
  - Foetal exposure during pregnancy [Unknown]
  - Foetal exposure during delivery [Unknown]
  - Premature baby [Unknown]
  - Hypotonia neonatal [Unknown]
  - Neonatal asphyxia [Unknown]
